FAERS Safety Report 22095546 (Version 2)
Quarter: 2024Q2

REPORT INFORMATION
  Report Type: Spontaneous
  Country: US (occurrence: US)
  Receive Date: 20230314
  Receipt Date: 20240610
  Transmission Date: 20240716
  Serious: Yes (Other)
  Sender: FDA-Public Use
  Company Number: US-PFIZER INC-202300105558

PATIENT
  Age: 88 Year
  Sex: Female

DRUGS (3)
  1. XELJANZ XR [Suspect]
     Active Substance: TOFACITINIB CITRATE
     Indication: Rheumatoid arthritis
     Dosage: 11 MG, DAILY
     Route: 048
  2. HUMIRA [Concomitant]
     Active Substance: ADALIMUMAB
     Dosage: HUMIRA-40MG/0.8ML, UNDER THE SKIN EVERY TWO WEEKS
  3. PFIZER-BIONTECH COVID-19 VACCINE [Concomitant]
     Active Substance: TOZINAMERAN
     Indication: COVID-19 immunisation
     Dosage: DOSE NUMBER UNKNOWN, SINGLE

REACTIONS (11)
  - Spinal fracture [Unknown]
  - Fall [Unknown]
  - Pneumonia [Unknown]
  - Product dose omission issue [Unknown]
  - Tooth abscess [Unknown]
  - Herpes zoster [Not Recovered/Not Resolved]
  - Fungal infection [Not Recovered/Not Resolved]
  - Peripheral swelling [Not Recovered/Not Resolved]
  - Pain [Not Recovered/Not Resolved]
  - Ephelides [Unknown]
  - Musculoskeletal chest pain [Not Recovered/Not Resolved]

NARRATIVE: CASE EVENT DATE: 20230101
